FAERS Safety Report 6487560-4 (Version None)
Quarter: 2009Q4

REPORT INFORMATION
  Report Type: 
  Country: None (occurrence: None)
  Receive Date: 20091210
  Receipt Date: 20090902
  Transmission Date: 20100525
  Serious: No
  Sender: FDA-Public Use
  Company Number: US-AMGEN-KDL360243

PATIENT
  Sex: Female
  Weight: 109 kg

DRUGS (2)
  1. ENBREL [Suspect]
     Indication: RHEUMATOID ARTHRITIS
     Route: 058
     Dates: start: 19990601
  2. METHOTREXATE [Concomitant]
     Route: 048

REACTIONS (12)
  - FOOT OPERATION [None]
  - INFLUENZA [None]
  - INJECTION SITE ERYTHEMA [None]
  - INJECTION SITE INDURATION [None]
  - INJECTION SITE PAIN [None]
  - INJECTION SITE PRURITUS [None]
  - INJECTION SITE REACTION [None]
  - INJECTION SITE SWELLING [None]
  - INJECTION SITE WARMTH [None]
  - NASOPHARYNGITIS [None]
  - OSTEOARTHRITIS [None]
  - RHEUMATOID ARTHRITIS [None]
